FAERS Safety Report 5068265-3 (Version None)
Quarter: 2006Q3

REPORT INFORMATION
  Report Type: 
  Country: None (occurrence: None)
  Receive Date: 20060802
  Receipt Date: 20050629
  Transmission Date: 20061208
  Serious: No
  Sender: FDA-Public Use
  Company Number: US-BRISTOL-MYERS SQUIBB COMPANY-13020409

PATIENT
  Age: 64 Year
  Sex: Female
  Weight: 78 kg

DRUGS (8)
  1. COUMADIN [Suspect]
     Indication: THROMBOSIS
     Dates: start: 20040201
  2. CLONIDINE [Concomitant]
  3. HUMULIN [Concomitant]
  4. LASIX [Concomitant]
  5. LOPRESSOR [Concomitant]
  6. LIPITOR [Concomitant]
  7. MICRO-K [Concomitant]
  8. ZIAC [Concomitant]

REACTIONS (1)
  - WEIGHT INCREASED [None]
